FAERS Safety Report 6716087-7 (Version None)
Quarter: 2010Q2

REPORT INFORMATION
  Report Type: 
  Country: None (occurrence: None)
  Receive Date: 20100507
  Receipt Date: 20100503
  Transmission Date: 20101027
  Serious: Yes (Hospitalization)
  Sender: FDA-Public Use
  Company Number: B0633243A

PATIENT
  Age: 36 Year
  Sex: Male

DRUGS (3)
  1. AUGMENTIN '125' [Suspect]
     Indication: EAR INFECTION
     Route: 048
     Dates: start: 20091130, end: 20091202
  2. IBUPROFEN [Suspect]
     Indication: EAR INFECTION
     Route: 048
     Dates: start: 20091130, end: 20091202
  3. ACETAMINOPHEN [Suspect]
     Indication: EAR INFECTION
     Route: 048
     Dates: start: 20091130, end: 20091202

REACTIONS (18)
  - CONDITION AGGRAVATED [None]
  - DRUG HYPERSENSITIVITY [None]
  - EOSINOPHILIC CELLULITIS [None]
  - FACE OEDEMA [None]
  - GENITAL ERYTHEMA [None]
  - HYPERTHERMIA [None]
  - LYMPHADENOPATHY [None]
  - MUCOUS MEMBRANE DISORDER [None]
  - ORTHOSTATIC HYPOTENSION [None]
  - PHARYNGEAL ERYTHEMA [None]
  - RASH ERYTHEMATOUS [None]
  - RASH MACULO-PAPULAR [None]
  - RASH PUSTULAR [None]
  - SCROTAL SWELLING [None]
  - SKIN EXFOLIATION [None]
  - TINEA VERSICOLOUR [None]
  - VASCULITIS [None]
  - XEROSIS [None]
